FAERS Safety Report 7466916-7 (Version None)
Quarter: 2011Q2

REPORT INFORMATION
  Report Type: 
  Country: None (occurrence: None)
  Receive Date: 20110509
  Receipt Date: 20100921
  Transmission Date: 20111010
  Serious: No
  Sender: FDA-Public Use
  Company Number: US-ALEXION-A201001209

PATIENT
  Sex: Male

DRUGS (4)
  1. SOLIRIS [Suspect]
     Indication: PAROXYSMAL NOCTURNAL HAEMOGLOBINURIA
     Dosage: UNK
     Route: 042
     Dates: start: 20080101
  2. VITAMIN C                          /00008001/ [Concomitant]
     Dosage: UNK
     Route: 048
  3. FLOMAX [Concomitant]
     Dosage: UNK
     Route: 048
  4. ANTICOAGULANT [Concomitant]
     Dosage: 8 MG, QD
     Route: 048

REACTIONS (3)
  - ABDOMINAL PAIN [None]
  - FATIGUE [None]
  - DYSPNOEA [None]
